FAERS Safety Report 10126499 (Version 1)
Quarter: 2014Q2

REPORT INFORMATION
  Report Type: Spontaneous
  Country: US (occurrence: US)
  Receive Date: 20140427
  Receipt Date: 20140427
  Transmission Date: 20141212
  Serious: Yes (Other)
  Sender: FDA-Public Use
  Company Number: US-BRISTOL-MYERS SQUIBB COMPANY-20652400

PATIENT
  Sex: Male

DRUGS (1)
  1. BYETTA [Suspect]
     Dates: start: 200610, end: 200702

REACTIONS (1)
  - Pancreatic carcinoma [Unknown]
